FAERS Safety Report 15299930 (Version 2)
Quarter: 2018Q3

REPORT INFORMATION
  Report Type: Report from Study
  Country: US (occurrence: US)
  Receive Date: 20180821
  Receipt Date: 20180824
  Transmission Date: 20181010
  Serious: Yes (Hospitalization)
  Sender: FDA-Public Use
  Company Number: US-ROCHE-1578450

PATIENT
  Age: 61 Year
  Sex: Male
  Weight: 82.6 kg

DRUGS (57)
  1. CYCLOPHOSPHAMIDE. [Suspect]
     Active Substance: CYCLOPHOSPHAMIDE
     Indication: DIFFUSE LARGE B-CELL LYMPHOMA
     Dosage: LAST DOSE PRIOR TO SAE ON 05/MAY/2015 AT 21.41, 20/AUG/2015 AT 17 27
     Route: 042
     Dates: start: 20150505
  2. VINCRISTINE [Suspect]
     Active Substance: VINCRISTINE
     Indication: DIFFUSE LARGE B-CELL LYMPHOMA
     Dosage: LAST DOSE PRIOR TO SAE ON 05/MAY/2015, AT 21.16, 20/AUG/2015
     Route: 042
     Dates: start: 20150505
  3. PREDNISONE. [Suspect]
     Active Substance: PREDNISONE
     Indication: DIFFUSE LARGE B-CELL LYMPHOMA
     Dosage: MOST RECENT DOSE PRIOR TO THE EVENT: 08/MAY/2015, 24/AUG/2015
     Route: 048
     Dates: start: 20150505
  4. VALSARTAN. [Concomitant]
     Active Substance: VALSARTAN
     Indication: HYPERTENSION
  5. PALONOSETRON. [Concomitant]
     Active Substance: PALONOSETRON HYDROCHLORIDE
     Dosage: PROPHYLAXIS FOR CHEMO?INDUCED NAUSEA/VOMITING
     Route: 065
     Dates: start: 20150526, end: 20150526
  6. AZITHROMYCIN ANHYDROUS. [Concomitant]
     Active Substance: AZITHROMYCIN ANHYDROUS
     Indication: VIRAL UPPER RESPIRATORY TRACT INFECTION
     Route: 065
     Dates: start: 20150511, end: 20150515
  7. OMEGA?3 ACIDS [Concomitant]
     Active Substance: OMEGA-3 FATTY ACIDS
     Dosage: INDICATION : FISH OIL SUPPLEMENT
     Route: 065
     Dates: start: 20150420, end: 20150427
  8. ZOLPIDEM [Concomitant]
     Active Substance: ZOLPIDEM\ZOLPIDEM TARTRATE
     Indication: INSOMNIA
     Route: 065
     Dates: start: 20150603
  9. GELCLAIR (UNITED STATES) [Concomitant]
     Indication: MUCOSAL INFLAMMATION
     Route: 065
     Dates: start: 20150805
  10. SIMVASTATIN. [Concomitant]
     Active Substance: SIMVASTATIN
     Indication: HYPERLIPIDAEMIA
     Route: 065
     Dates: end: 20160502
  11. SENNA [Concomitant]
     Active Substance: SENNA LEAF\SENNOSIDES\SENNOSIDES A AND B
     Indication: CONSTIPATION
     Route: 065
     Dates: start: 20150427, end: 20160502
  12. FUROSEMIDE. [Concomitant]
     Active Substance: FUROSEMIDE
     Dosage: PROPHYLAXIS FOR CHEMO EDEMA AND WEIGHT GAIN
     Route: 065
     Dates: start: 20150505, end: 20150509
  13. LACTULOSE. [Concomitant]
     Active Substance: LACTULOSE
     Indication: CONSTIPATION
     Route: 065
     Dates: start: 20150504, end: 20150505
  14. POTASSIUM CHLORIDE. [Concomitant]
     Active Substance: POTASSIUM CHLORIDE
     Indication: HYPOKALAEMIA
     Route: 065
     Dates: start: 20150511, end: 20150511
  15. ESZOPICLONE. [Concomitant]
     Active Substance: ESZOPICLONE
     Indication: INSOMNIA
     Route: 065
     Dates: start: 20150728
  16. VENETOCLAX. [Suspect]
     Active Substance: VENETOCLAX
     Indication: DIFFUSE LARGE B-CELL LYMPHOMA
     Dosage: MOST RECENT DOSE PRIOR TO THE EVENT: 13/MAY/2015, 10/OCT/2015
     Route: 048
     Dates: start: 20150508
  17. VENETOCLAX. [Suspect]
     Active Substance: VENETOCLAX
     Route: 048
     Dates: start: 20150526
  18. RITUXIMAB. [Suspect]
     Active Substance: RITUXIMAB
     Indication: DIFFUSE LARGE B-CELL LYMPHOMA
     Dosage: LAST DOSE PRIOR TO SAE ON 05/MAY/2015 AT 15.34, 01/OCT/2015 AT 12 25 (750 MG)
     Route: 042
     Dates: start: 20150505
  19. PREDNISONE. [Suspect]
     Active Substance: PREDNISONE
     Indication: TUMOUR LYSIS SYNDROME
     Route: 065
     Dates: start: 20150504
  20. CLONAZEPAM. [Concomitant]
     Active Substance: CLONAZEPAM
     Indication: INSOMNIA
  21. ENOXAPARIN [Concomitant]
     Active Substance: ENOXAPARIN
     Indication: RENAL FAILURE
     Route: 065
     Dates: start: 20150505, end: 20150509
  22. LORAZEPAM. [Concomitant]
     Active Substance: LORAZEPAM
     Indication: NAUSEA
     Route: 065
     Dates: start: 20150506, end: 20150506
  23. NORMAL SALINE [Concomitant]
     Active Substance: SODIUM CHLORIDE
     Route: 065
     Dates: start: 20150526, end: 20150526
  24. ACYCLOVIR. [Concomitant]
     Active Substance: ACYCLOVIR
     Dosage: FOR VIRAL PROPHYLAXIS
     Route: 065
     Dates: start: 20150526
  25. ACETAMINOPHEN. [Concomitant]
     Active Substance: ACETAMINOPHEN
     Indication: PAIN
     Dosage: RITUXIMAB PRE?MED
     Route: 065
     Dates: start: 20150505, end: 20150505
  26. BISACODYL. [Concomitant]
     Active Substance: BISACODYL
     Indication: CONSTIPATION
     Route: 065
     Dates: start: 20150415, end: 20150504
  27. OXYCODONE [Concomitant]
     Active Substance: OXYCODONE
     Indication: PAIN
     Route: 065
     Dates: start: 20150501
  28. ALLOPURINOL. [Concomitant]
     Active Substance: ALLOPURINOL
     Indication: TUMOUR LYSIS SYNDROME
     Route: 065
     Dates: start: 20150504, end: 20150618
  29. DIPHENHYDRAMINE. [Concomitant]
     Active Substance: DIPHENHYDRAMINE
     Indication: COUGH
     Dosage: RITUXIMAB PRE?MED
     Route: 065
     Dates: start: 20150505, end: 20150505
  30. PANTOPRAZOLE [Concomitant]
     Active Substance: PANTOPRAZOLE
     Dosage: PROPHYLAXIS FOR CHEMO?INDUCED GASTROESPOPHAGEAL REFLUX DISEASE
     Route: 065
     Dates: start: 20150505, end: 20150608
  31. DOCUSATE SODIUM. [Concomitant]
     Active Substance: DOCUSATE SODIUM
     Indication: CONSTIPATION
     Route: 065
     Dates: start: 20150504, end: 20150509
  32. ACETAMINOPHEN/OXYCODONE [Concomitant]
     Active Substance: ACETAMINOPHEN\OXYCODONE HYDROCHLORIDE
     Indication: PAIN
     Route: 065
     Dates: end: 20150501
  33. FOSAPREPITANT [Concomitant]
     Active Substance: FOSAPREPITANT
     Dosage: PROPHYLAXIS FOR CHEMO?INDUCED NAUSEA/VOMITING
     Route: 065
     Dates: start: 20150505, end: 20150505
  34. PIPERACILLIN/TAZOBACTAM [Concomitant]
     Active Substance: PIPERACILLIN SODIUM\TAZOBACTAM SODIUM
     Dosage: INDICATION: PARA INFLUENZA
     Route: 065
     Dates: start: 20150513, end: 20150513
  35. RED BLOOD CELLS [Concomitant]
     Active Substance: HUMAN RED BLOOD CELL
     Indication: ANAEMIA
     Route: 065
     Dates: start: 20150514, end: 20150514
  36. DOXORUBICIN [Suspect]
     Active Substance: DOXORUBICIN
     Indication: DIFFUSE LARGE B-CELL LYMPHOMA
     Dosage: LAST DOSE PRIOR TO SAE ON 05/MAY/2015, AT 20.31, 20/AUG/2015
     Route: 042
     Dates: start: 20150505
  37. ACETAMINOPHEN. [Concomitant]
     Active Substance: ACETAMINOPHEN
     Dosage: SELECT IF ONGOING=NO
     Route: 065
     Dates: start: 20150513, end: 20150513
  38. POLYETHYLENE GLYCOL [Concomitant]
     Active Substance: POLYETHYLENE GLYCOLS
     Indication: CONSTIPATION
     Route: 065
     Dates: start: 20150430, end: 20160502
  39. ALPRAZOLAM. [Concomitant]
     Active Substance: ALPRAZOLAM
     Indication: ANXIETY
     Route: 065
     Dates: start: 20150508, end: 20150508
  40. DIPHENHYDRAMINE. [Concomitant]
     Active Substance: DIPHENHYDRAMINE
     Indication: NASAL CONGESTION
     Dosage: SELECT IF ONGOING=NO
     Route: 065
     Dates: start: 20150509, end: 20150511
  41. FOSAPREPITANT [Concomitant]
     Active Substance: FOSAPREPITANT
     Dosage: PROPHYLAXIS FOR CHEMO?INDUCED NAUSEA/VOMITING
     Route: 065
     Dates: start: 20150526, end: 20150526
  42. ATENOLOL. [Concomitant]
     Active Substance: ATENOLOL
     Indication: HYPERTENSION
     Route: 065
     Dates: end: 20160114
  43. ONDANSETRON [Concomitant]
     Active Substance: ONDANSETRON
     Indication: NAUSEA
     Route: 065
     Dates: start: 20150414, end: 20150427
  44. PROCHLORPERAZINE. [Concomitant]
     Active Substance: PROCHLORPERAZINE
     Indication: NAUSEA
     Route: 065
     Dates: start: 20150509, end: 20151124
  45. DIPHENHYDRAMINE. [Concomitant]
     Active Substance: DIPHENHYDRAMINE
     Dosage: INDICATION: RITUXIMAB PRE?MED
     Route: 065
     Dates: start: 20150526, end: 20150526
  46. NORMAL SALINE [Concomitant]
     Active Substance: SODIUM CHLORIDE
     Route: 065
     Dates: start: 20150507, end: 20150508
  47. PALONOSETRON. [Concomitant]
     Active Substance: PALONOSETRON HYDROCHLORIDE
     Dosage: PROPHYLAXIS FOR CHEMO?INDUCED NAUSEA/VOMITING
     Route: 065
     Dates: start: 20150505, end: 20150505
  48. OXYCONTIN [Concomitant]
     Active Substance: OXYCODONE HYDROCHLORIDE
     Indication: ANALGESIC THERAPY
     Route: 065
     Dates: start: 20150509, end: 20150618
  49. IBUPROFEN. [Concomitant]
     Active Substance: IBUPROFEN
     Indication: PAIN
     Route: 065
     Dates: start: 20150910
  50. ACETAMINOPHEN. [Concomitant]
     Active Substance: ACETAMINOPHEN
     Indication: PYREXIA
     Dosage: RITUXIMAB PRE?MED
     Route: 065
     Dates: start: 20150526, end: 20150526
  51. COLACE [Concomitant]
     Active Substance: DOCUSATE SODIUM
     Indication: CONSTIPATION
     Route: 065
     Dates: start: 20150430, end: 20160502
  52. ENOXAPARIN [Concomitant]
     Active Substance: ENOXAPARIN
     Indication: THROMBOSIS PROPHYLAXIS
     Dosage: SELECT IF ONGOING=NO
     Route: 065
     Dates: start: 20150513, end: 20150516
  53. SEVELAMER [Concomitant]
     Active Substance: SEVELAMER
     Indication: HYPERPHOSPHATAEMIA
     Route: 065
     Dates: start: 20150509, end: 20150509
  54. INSULIN [Concomitant]
     Active Substance: INSULIN NOS
     Indication: BLOOD GLUCOSE
     Route: 065
     Dates: start: 20150505, end: 20150505
  55. MAGNESIUM SULFATE. [Concomitant]
     Active Substance: MAGNESIUM SULFATE
     Indication: CONSTIPATION
     Route: 065
     Dates: start: 20150507, end: 20150508
  56. NORMAL SALINE [Concomitant]
     Active Substance: SODIUM CHLORIDE
     Dosage: STANDARD CHEMO HYDRATION
     Route: 065
     Dates: start: 20150505, end: 20150505
  57. RED BLOOD CELLS [Concomitant]
     Active Substance: HUMAN RED BLOOD CELL
     Indication: ANAEMIA
     Route: 065
     Dates: start: 20150508, end: 20150508

REACTIONS (2)
  - Rhinovirus infection [Recovered/Resolved]
  - Febrile neutropenia [Recovered/Resolved]

NARRATIVE: CASE EVENT DATE: 20150513
